FAERS Safety Report 9905359 (Version 2)
Quarter: 2014Q1

REPORT INFORMATION
  Report Type: Spontaneous
  Country: GB (occurrence: None)
  Receive Date: 20140211
  Receipt Date: 20140218
  Transmission Date: 20141002
  Serious: Yes (Other)
  Sender: FDA-Public Use
  Company Number: AUR-APL-2014-01331

PATIENT
  Age: 67 Year
  Sex: Male
  Weight: 80.5 kg

DRUGS (5)
  1. RAMIPRIL [Suspect]
     Indication: PRODUCT USED FOR UNKNOWN INDICATION
     Dosage: UNKNOWN
     Dates: start: 20140123
  2. AMLODIPINE (AMLODIPINE) [Concomitant]
  3. ASPIRIN (ACETYLSALICYLIC ACID) [Concomitant]
  4. SIMVASTATIN (SIMVASTATIN) [Concomitant]
  5. VALSARTAN (VALSARTAN) [Concomitant]

REACTIONS (1)
  - Blister [None]
